FAERS Safety Report 6694450-0 (Version None)
Quarter: 2010Q2

REPORT INFORMATION
  Report Type: 
  Country: None (occurrence: None)
  Receive Date: 20100423
  Receipt Date: 20100419
  Transmission Date: 20101027
  Serious: Yes (Other)
  Sender: FDA-Public Use
  Company Number: US-JNJCH-2010005535

PATIENT
  Age: 85 Year
  Sex: Female
  Weight: 54 kg

DRUGS (1)
  1. LISTERINE WHITENING QUICK DISSOLVING STRIPS [Suspect]
     Indication: DENTAL CARE
     Dosage: TEXT:AS DIRECTED THREE TIMES
     Route: 048
     Dates: start: 20100226, end: 20100227

REACTIONS (3)
  - BURNING SENSATION [None]
  - LIP SWELLING [None]
  - OROPHARYNGEAL BLISTERING [None]
